FAERS Safety Report 12886101 (Version 2)
Quarter: 2017Q1

REPORT INFORMATION
  Report Type: Spontaneous
  Country: US (occurrence: US)
  Receive Date: 20161026
  Receipt Date: 20170207
  Transmission Date: 20170428
  Serious: No
  Sender: FDA-Public Use
  Company Number: US-009507513-1610USA012887

PATIENT
  Age: 16 Year
  Sex: Female

DRUGS (2)
  1. NEXPLANON [Suspect]
     Active Substance: ETONOGESTREL
     Indication: CONTRACEPTION
     Dosage: 68 MG, 1 IMPLANT EVERY 3 YEARS
     Route: 059
     Dates: start: 20160912, end: 20161022
  2. NEXPLANON [Suspect]
     Active Substance: ETONOGESTREL
     Dosage: 68 MG, 1 IMPLANT EVERY 3 YEARS
     Route: 059
     Dates: start: 20161029

REACTIONS (2)
  - Device expulsion [Recovered/Resolved]
  - Implant site infection [Unknown]

NARRATIVE: CASE EVENT DATE: 20161022
